FAERS Safety Report 19459426 (Version 1)
Quarter: 2021Q2

REPORT INFORMATION
  Report Type: Spontaneous
  Country: US (occurrence: US)
  Receive Date: 20210625
  Receipt Date: 20210625
  Transmission Date: 20210717
  Serious: No
  Sender: FDA-Public Use
  Company Number: None

PATIENT
  Age: 75 Year
  Sex: Female
  Weight: 103.5 kg

DRUGS (13)
  1. STOOL SOFTENER (DOCUSATE) [Concomitant]
     Active Substance: DOCUSATE
  2. ZOMETA [Concomitant]
     Active Substance: ZOLEDRONIC ACID
  3. ALPRAZOLAM. [Concomitant]
     Active Substance: ALPRAZOLAM
  4. ELIQUIS [Concomitant]
     Active Substance: APIXABAN
  5. IBRANCE [Suspect]
     Active Substance: PALBOCICLIB
     Indication: BREAST CANCER
     Dosage: ?          OTHER FREQUENCY:DAILY FOR 21/28D;?
     Route: 048
     Dates: start: 20210420
  6. LIDOCAINE. [Concomitant]
     Active Substance: LIDOCAINE
  7. ZOFRAN [Concomitant]
     Active Substance: ONDANSETRON HYDROCHLORIDE
  8. BUMETANIDE. [Concomitant]
     Active Substance: BUMETANIDE
  9. IRON [Concomitant]
     Active Substance: IRON
  10. DENTAGEL [Concomitant]
     Active Substance: SODIUM FLUORIDE
  11. PANTOPRAZOLE [Concomitant]
     Active Substance: PANTOPRAZOLE
  12. VITAMIN D3 [Concomitant]
     Active Substance: CHOLECALCIFEROL
  13. HYDROCODONE?APAP [Concomitant]
     Active Substance: ACETAMINOPHEN\HYDROCODONE

REACTIONS (2)
  - Constipation [None]
  - Neutrophil count decreased [None]

NARRATIVE: CASE EVENT DATE: 20210625
